FAERS Safety Report 14260667 (Version 1)
Quarter: 2017Q4

REPORT INFORMATION
  Report Type: Spontaneous
  Country: US (occurrence: US)
  Receive Date: 20171207
  Receipt Date: 20171207
  Transmission Date: 20180321
  Serious: Yes (Hospitalization, Disabling, Other)
  Sender: FDA-Public Use
  Company Number: US-SAOL THERAPEUTICS-2017SAO01653

PATIENT
  Age: 37 Year
  Sex: Female

DRUGS (27)
  1. ZESTRIL [Concomitant]
     Active Substance: LISINOPRIL
     Dosage: 1 TABLETS, 1X/DAY
  2. MYCOSTATIN [Concomitant]
     Active Substance: NYSTATIN
     Dosage: UNK, AS NEEDED
     Route: 061
  3. BISACODYL EC [Concomitant]
     Active Substance: BISACODYL
     Dosage: 10 MG, EVERY 96 HOURS
     Route: 048
  4. LIORESAL - ORAL [Concomitant]
     Dosage: 20 MG, AS NEEDED
  5. NITROSTAT [Concomitant]
     Active Substance: NITROGLYCERIN
     Dosage: 1 TABLETS, AS NEEDED
  6. JANTOVEN [Concomitant]
     Active Substance: WARFARIN SODIUM
     Dosage: 5 MG, AS DIRECTED
  7. VITAMIN D [Concomitant]
     Active Substance: CHOLECALCIFEROL
     Dosage: 1 CAPSULES, 1X/DAY
     Route: 048
  8. GLUCOSE [Concomitant]
     Active Substance: DEXTROSE
     Dosage: 1 TABLETS, AS NEEDED
  9. MAALOX ANTACID [Concomitant]
     Active Substance: ALUMINUM HYDROXIDE\DIMETHICONE\MAGNESIUM HYDROXIDE
     Dosage: 30 ML, AS NEEDED
     Route: 048
  10. MILK OF MAGNESIA [Concomitant]
     Active Substance: MAGNESIUM HYDROXIDE
     Dosage: 30 ML, AS NEEDED
  11. ASPIRIN. [Concomitant]
     Active Substance: ASPIRIN
     Dosage: 1 TABLETS, 1X/DAY
     Route: 048
  12. TYLENOL [Concomitant]
     Active Substance: ACETAMINOPHEN
     Dosage: 650 MG, AS NEEDED
  13. BACLOFEN. [Suspect]
     Active Substance: BACLOFEN
     Indication: MUSCLE SPASTICITY
     Dosage: 185 ?G, \DAY
     Route: 037
  14. CYMBALTA [Concomitant]
     Active Substance: DULOXETINE HYDROCHLORIDE
     Dosage: 60 MG, 2X/DAY
     Route: 048
  15. GLYXAMBI [Concomitant]
     Active Substance: EMPAGLIFLOZIN\LINAGLIPTIN
     Dosage: 1 TABLETS, 1X/DAY
  16. THICK IT [Concomitant]
     Dosage: UNK
     Route: 048
  17. CENTROVITE [Concomitant]
     Dosage: 1 TABLETS, 1X/DAY
  18. TOPROL XL [Concomitant]
     Active Substance: METOPROLOL SUCCINATE
     Dosage: 1 TABLETS, 1X/DAY
     Route: 048
  19. JANTOVEN [Concomitant]
     Active Substance: WARFARIN SODIUM
     Dosage: 2.5 MG, AS DIRECTED
  20. GLUCAGON RDNA [Concomitant]
     Dosage: 1 MG, AS NEEDED
  21. LANTUS [Concomitant]
     Active Substance: INSULIN GLARGINE
     Dosage: 8 U, 1X/DAY
  22. NOVOLOG [Concomitant]
     Active Substance: INSULIN ASPART
  23. SENNA LAXATIVE [Concomitant]
     Active Substance: SENNOSIDES
     Dosage: 2 TABLETS, 1X/DAY
  24. ZOCOR [Concomitant]
     Active Substance: SIMVASTATIN
     Dosage: 1 TABLETS, 1X/DAY
     Route: 048
  25. ABILIFY [Concomitant]
     Active Substance: ARIPIPRAZOLE
     Dosage: 2 MG, 1X/DAY
     Route: 048
  26. DOCQLACE [Concomitant]
     Active Substance: DOCUSATE SODIUM
     Dosage: 4 CAPSULES, 1X/DAY
  27. TYLENOL [Concomitant]
     Active Substance: ACETAMINOPHEN
     Dosage: UNK UNK, AS NEEDED
     Route: 048

REACTIONS (38)
  - Dysphagia [Not Recovered/Not Resolved]
  - Encephalopathy [Recovered/Resolved]
  - Acute myocardial infarction [Unknown]
  - Peripheral vascular disorder [Not Recovered/Not Resolved]
  - Left ventricular failure [Not Recovered/Not Resolved]
  - Transient ischaemic attack [Not Recovered/Not Resolved]
  - Ketosis [Recovered/Resolved]
  - Hyperlipidaemia [Recovered/Resolved]
  - Unresponsive to stimuli [Not Recovered/Not Resolved]
  - Hypokalaemia [Recovered/Resolved]
  - Hypophagia [Unknown]
  - Sleep apnoea syndrome [Not Recovered/Not Resolved]
  - Abnormal behaviour [Not Recovered/Not Resolved]
  - Oedema peripheral [Not Recovered/Not Resolved]
  - Anticoagulation drug level above therapeutic [Recovered/Resolved]
  - Cellulitis [Recovered/Resolved]
  - Hypernatraemia [Recovered/Resolved]
  - Acute coronary syndrome [Recovered/Resolved]
  - Hypertrophic cardiomyopathy [Not Recovered/Not Resolved]
  - Anal incontinence [Not Recovered/Not Resolved]
  - Generalised anxiety disorder [Not Recovered/Not Resolved]
  - Acute kidney injury [Recovered/Resolved]
  - Aphasia [Not Recovered/Not Resolved]
  - Dyslipidaemia [Not Recovered/Not Resolved]
  - Diabetes mellitus [Recovered/Resolved]
  - Nausea [Recovered/Resolved]
  - Troponin increased [Recovered/Resolved]
  - Metabolic acidosis [Recovered/Resolved]
  - Hypoaesthesia [Not Recovered/Not Resolved]
  - Pyuria [Unknown]
  - Cerebrovascular accident [Not Recovered/Not Resolved]
  - Constipation [Not Recovered/Not Resolved]
  - Urinary incontinence [Not Recovered/Not Resolved]
  - Leukocytosis [Recovered/Resolved]
  - Lethargy [Not Recovered/Not Resolved]
  - Lactic acidosis [Recovered/Resolved]
  - Dehydration [Recovered/Resolved]
  - Major depression [Not Recovered/Not Resolved]

NARRATIVE: CASE EVENT DATE: 2014
